FAERS Safety Report 8092693-5 (Version None)
Quarter: 2012Q1

REPORT INFORMATION
  Report Type: 
  Country: None (occurrence: None)
  Receive Date: 20120128
  Receipt Date: 20110804
  Transmission Date: 20120608
  Serious: No
  Sender: FDA-Public Use
  Company Number: US-ABBOTT-11P-163-0844080-00

PATIENT
  Age: 30 Year
  Sex: Male

DRUGS (4)
  1. NAPROXEN (ALEVE) [Concomitant]
     Indication: PRODUCT USED FOR UNKNOWN INDICATION
  2. PREDNISONE TAB [Suspect]
     Dates: start: 20110501
  3. HUMIRA [Suspect]
     Indication: CROHN'S DISEASE
     Dates: start: 20110401
  4. VITAMIN TAB [Concomitant]
     Indication: PRODUCT USED FOR UNKNOWN INDICATION

REACTIONS (3)
  - CROHN'S DISEASE [None]
  - HYPERTENSION [None]
  - STRESS [None]
